FAERS Safety Report 7684187-3 (Version None)
Quarter: 2011Q3

REPORT INFORMATION
  Report Type: 
  Country: None (occurrence: None)
  Receive Date: 20110815
  Receipt Date: 20101203
  Transmission Date: 20111222
  Serious: Yes (Other)
  Sender: FDA-Public Use
  Company Number: US-BAYER-201036955NA

PATIENT
  Age: 53 Year
  Sex: Male
  Weight: 127 kg

DRUGS (16)
  1. TAGAMET [Concomitant]
     Indication: GASTROOESOPHAGEAL REFLUX DISEASE
  2. RYTHMOL [Concomitant]
     Dosage: 150 MG, TID
  3. SENSIPAR [Concomitant]
     Indication: CALCIUM METABOLISM DISORDER
     Dosage: 30 MG, QID
  4. HECTOROL [Concomitant]
  5. XANAX [Concomitant]
     Dosage: 0.5 MG DAILY
  6. COUMADIN [Concomitant]
     Indication: THROMBOSIS PROPHYLAXIS
     Dosage: ONCE DAILY, UNK
  7. PREDNISONE [Concomitant]
  8. EPOGEN [Concomitant]
  9. OMNISCAN [Suspect]
     Indication: NUCLEAR MAGNETIC RESONANCE IMAGING THORACIC
     Dosage: UNK
     Route: 042
     Dates: start: 20041011, end: 20041011
  10. OPTIMARK [Suspect]
     Indication: NUCLEAR MAGNETIC RESONANCE IMAGING
  11. VICODIN [Concomitant]
     Indication: PAIN
     Dosage: 750 MG-1500 MG EVERY 4-6 HOURS
  12. NEPHROCAPS [Concomitant]
     Dosage: 1 DF, QID
  13. MAGNEVIST [Suspect]
  14. DILAUDID [Concomitant]
     Indication: PAIN
     Dosage: 8 MG, QID
  15. OMNISCAN [Suspect]
     Indication: NUCLEAR MAGNETIC RESONANCE IMAGING
  16. METOPROLOL TARTRATE [Concomitant]
     Indication: CARDIAC FAILURE
     Dosage: 12.5 MG, BID

REACTIONS (13)
  - SKIN INDURATION [None]
  - BURNING SENSATION [None]
  - PARAESTHESIA [None]
  - MUSCULAR WEAKNESS [None]
  - SCAR [None]
  - PAIN [None]
  - SKIN TIGHTNESS [None]
  - PRURITUS [None]
  - NEPHROGENIC SYSTEMIC FIBROSIS [None]
  - DEFORMITY [None]
  - SWELLING [None]
  - HYPOAESTHESIA [None]
  - GENERAL PHYSICAL HEALTH DETERIORATION [None]
